FAERS Safety Report 17982490 (Version 6)
Quarter: 2020Q4

REPORT INFORMATION
  Report Type: Spontaneous
  Country: US (occurrence: US)
  Receive Date: 20200706
  Receipt Date: 20201104
  Transmission Date: 20210113
  Serious: Yes (Other)
  Sender: FDA-Public Use
  Company Number: US-GLAXOSMITHKLINE-US2020AMR119657

PATIENT
  Sex: Female

DRUGS (3)
  1. ZEJULA [Suspect]
     Active Substance: NIRAPARIB
     Dosage: 100 MG, QD
     Route: 048
  2. ZEJULA [Suspect]
     Active Substance: NIRAPARIB
     Indication: OVARIAN CANCER
     Dosage: 200 MG, QD
     Route: 048
     Dates: start: 20200612, end: 20200708
  3. ZEJULA [Suspect]
     Active Substance: NIRAPARIB
     Dosage: 100 MG, QD
     Route: 048

REACTIONS (18)
  - Heart rate increased [Unknown]
  - Weight decreased [Unknown]
  - Memory impairment [Unknown]
  - Blood sodium decreased [Unknown]
  - Product dose omission issue [Unknown]
  - Fatigue [Unknown]
  - Neuropathy peripheral [Unknown]
  - Decreased appetite [Unknown]
  - Fall [Unknown]
  - Ageusia [Unknown]
  - Flatulence [Unknown]
  - Nausea [Unknown]
  - Constipation [Unknown]
  - Feeling abnormal [Not Recovered/Not Resolved]
  - Abdominal distension [Unknown]
  - Insomnia [Unknown]
  - Abdominal pain upper [Unknown]
  - Balance disorder [Unknown]
